FAERS Safety Report 9778770 (Version 7)
Quarter: 2018Q1

REPORT INFORMATION
  Report Type: Spontaneous
  Country: US (occurrence: US)
  Receive Date: 20131223
  Receipt Date: 20180116
  Transmission Date: 20180509
  Serious: No
  Sender: FDA-Public Use
  Company Number: US-009507513-1312USA006342

PATIENT
  Sex: Male
  Weight: 76.64 kg

DRUGS (5)
  1. BECONASE AQ [Concomitant]
     Active Substance: BECLOMETHASONE DIPROPIONATE MONOHYDRATE
     Indication: SEASONAL ALLERGY
     Dosage: UNK
     Dates: start: 1990
  2. SEREVENT DISKUS [Concomitant]
     Active Substance: SALMETEROL XINAFOATE
     Indication: ASTHMA
     Dosage: UNK
     Dates: start: 1990
  3. ALBUTEROL. [Concomitant]
     Active Substance: ALBUTEROL
     Indication: ASTHMA
     Dosage: UNK
     Dates: start: 1990
  4. PROSCAR [Suspect]
     Active Substance: FINASTERIDE
     Indication: ANDROGENETIC ALOPECIA
     Dosage: 5 MG, UNK
     Route: 048
     Dates: start: 20010915, end: 20021113
  5. PROPECIA [Suspect]
     Active Substance: FINASTERIDE
     Dosage: UNK
     Route: 048

REACTIONS (18)
  - Calcification of muscle [Unknown]
  - Migraine [Unknown]
  - Calculus urinary [Recovering/Resolving]
  - Infection [Unknown]
  - Fibromyalgia [Unknown]
  - Insomnia [Not Recovered/Not Resolved]
  - Drug ineffective [Unknown]
  - Libido decreased [Unknown]
  - Drug administration error [Recovered/Resolved]
  - Vitamin D deficiency [Unknown]
  - Anxiety [Unknown]
  - Organic erectile dysfunction [Not Recovered/Not Resolved]
  - Haematuria [Unknown]
  - Depressed mood [Unknown]
  - Hypothyroidism [Unknown]
  - Prostatomegaly [Recovered/Resolved]
  - Pain [Unknown]
  - Cyst [Unknown]

NARRATIVE: CASE EVENT DATE: 20010915
